FAERS Safety Report 12523170 (Version 1)
Quarter: 2016Q3

REPORT INFORMATION
  Report Type: Spontaneous
  Country: FR (occurrence: FR)
  Receive Date: 20160701
  Receipt Date: 20160701
  Transmission Date: 20161109
  Serious: Yes (Hospitalization)
  Sender: FDA-Public Use
  Company Number: FR-JNJFOC-20160625049

PATIENT
  Age: 81 Year
  Sex: Male

DRUGS (4)
  1. COLCHIMAX [Suspect]
     Active Substance: COLCHICINE\DICYCLOMINE HYDROCHLORIDE
     Indication: PRODUCT USED FOR UNKNOWN INDICATION
     Dosage: BLISTER SHEETS
     Route: 048
  2. IMODIUM [Suspect]
     Active Substance: LOPERAMIDE HYDROCHLORIDE
     Indication: PRODUCT USED FOR UNKNOWN INDICATION
     Dosage: A BLISTER SHEET
     Route: 048
  3. IMODIUM [Suspect]
     Active Substance: LOPERAMIDE HYDROCHLORIDE
     Route: 048
  4. DAFALGAN [Suspect]
     Active Substance: ACETAMINOPHEN
     Indication: PRODUCT USED FOR UNKNOWN INDICATION
     Dosage: INCOMPLETE BLISTER SHEET, THE MAXIMUM DOSE INGESTED WAS THOUGHT TO BE LESS THAN 0.5 MG/KG
     Route: 048

REACTIONS (3)
  - Suicide attempt [Unknown]
  - Intentional overdose [Unknown]
  - Symptom masked [Recovering/Resolving]
